FAERS Safety Report 20951784 (Version 1)
Quarter: 2022Q2

REPORT INFORMATION
  Report Type: Spontaneous
  Country: FR (occurrence: FR)
  Receive Date: 20220613
  Receipt Date: 20220613
  Transmission Date: 20220721
  Serious: Yes (Other)
  Sender: FDA-Public Use
  Company Number: None

PATIENT
  Age: 33 Year
  Sex: Male

DRUGS (7)
  1. ELEXACAFTOR\IVACAFTOR\TEZACAFTOR [Suspect]
     Active Substance: ELEXACAFTOR\IVACAFTOR\TEZACAFTOR
     Indication: Cystic fibrosis
     Dosage: 75 MG IVACAFTOR/50 MG TEZACAFTOR/100 MG ELEXACAFTOR
     Route: 048
     Dates: start: 20210802, end: 202112
  2. ALBUTEROL [Concomitant]
     Active Substance: ALBUTEROL
     Dosage: 1 DOSAGE FORM (100 MICROGRAMS) AS NACESSARY
  3. CREON [Concomitant]
     Active Substance: PANCRELIPASE AMYLASE\PANCRELIPASE LIPASE\PANCRELIPASE PROTEASE
     Dosage: GASTRO-RESISTANT GRANULES IN CAPSULE
     Route: 048
  4. INNOVAIR [Concomitant]
     Active Substance: BECLOMETHASONE DIPROPIONATE\FORMOTEROL
     Dosage: 100/6 MICROGRAMS/ DOSE
  5. .ALPHA.-TOCOPHEROL ACETATE, D- [Concomitant]
     Active Substance: .ALPHA.-TOCOPHEROL ACETATE, D-
     Dosage: SOFT CAPSULE
     Route: 048
     Dates: end: 20220516
  6. PULMOZYME [Concomitant]
     Active Substance: DORNASE ALFA
     Dosage: 2500 U/ 2.5ML, SOLUTION IN AMPOULE
     Route: 055
  7. COLISTIMETHATE SODIUM [Concomitant]
     Active Substance: COLISTIMETHATE SODIUM
     Dosage: 1 MILLION INTERNATION UNITS (IU) POWDER
     Route: 055
     Dates: end: 202205

REACTIONS (6)
  - Hyperventilation [Recovered/Resolved]
  - Asthenia [Not Recovered/Not Resolved]
  - Palpitations [Recovered/Resolved]
  - Insomnia [Recovered/Resolved]
  - Chest pain [Recovered/Resolved]
  - Tremor [Recovered/Resolved]

NARRATIVE: CASE EVENT DATE: 20210901
